FAERS Safety Report 5037141-4 (Version None)
Quarter: 2006Q2

REPORT INFORMATION
  Report Type: 
  Country: None (occurrence: None)
  Receive Date: 20060622
  Receipt Date: 20060612
  Transmission Date: 20061013
  Serious: Yes (Hospitalization)
  Sender: FDA-Public Use
  Company Number: 2006-DE-03020GD

PATIENT

DRUGS (3)
  1. HYDROCHLOROTHIAZIDE [Suspect]
  2. RIFAMPICIN [Suspect]
     Indication: TUBERCULOSIS
  3. PYRAZINAMIDE [Suspect]
     Indication: TUBERCULOSIS
     Dosage: SEE TEXT,

REACTIONS (1)
  - HEPATIC TRAUMA [None]
